FAERS Safety Report 4535934-0 (Version None)
Quarter: 2004Q4

REPORT INFORMATION
  Report Type: 
  Country: None (occurrence: None)
  Receive Date: 20041217
  Receipt Date: 20041206
  Transmission Date: 20050328
  Serious: Yes (Hospitalization, Other)
  Sender: FDA-Public Use
  Company Number: 2004106887

PATIENT
  Age: 82 Year
  Sex: Female
  Weight: 54.4316 kg

DRUGS (9)
  1. CELEBREX [Suspect]
     Indication: RHEUMATOID ARTHRITIS
     Dosage: 100 MG (100 MG, 1 IN 1 D), ORAL
     Route: 048
  2. AMLODIPINE BESYLATE [Concomitant]
  3. ESOMEPRAZOLE (ESOMEPRAZOLE) [Concomitant]
  4. MESALAMINE [Concomitant]
  5. SIMVASTATIN [Concomitant]
  6. CALCIUM CITRATE (CALCIUM CITRATE) [Concomitant]
  7. ALLOPURINOL [Concomitant]
  8. RALOXIFENE HCL [Concomitant]
  9. ALENDRONATE SODIUM [Concomitant]

REACTIONS (2)
  - ARTERIAL DISORDER [None]
  - CEREBROVASCULAR ACCIDENT [None]
